FAERS Safety Report 7019028-0 (Version None)
Quarter: 2010Q3

REPORT INFORMATION
  Report Type: 
  Country: None (occurrence: None)
  Receive Date: 20100928
  Receipt Date: 20100924
  Transmission Date: 20110219
  Serious: Yes (Hospitalization)
  Sender: FDA-Public Use
  Company Number: A0811916A

PATIENT
  Age: 48 Year
  Sex: Male
  Weight: 90.9 kg

DRUGS (7)
  1. AVANDIA [Suspect]
     Dosage: 4MG TWICE PER DAY
     Route: 048
     Dates: start: 19990901, end: 20090630
  2. AVANDAMET [Suspect]
     Route: 048
  3. METFORMIN [Concomitant]
  4. HYDROCODONE [Concomitant]
  5. CLONIDINE [Concomitant]
  6. MICARDIS [Concomitant]
  7. NIFEDIPINE [Concomitant]

REACTIONS (2)
  - CARDIAC FAILURE CONGESTIVE [None]
  - CORONARY ARTERY DISEASE [None]
